FAERS Safety Report 7570368-6 (Version None)
Quarter: 2011Q2

REPORT INFORMATION
  Report Type: 
  Country: None (occurrence: None)
  Receive Date: 20110624
  Receipt Date: 20110302
  Transmission Date: 20111010
  Serious: Yes (Other)
  Sender: FDA-Public Use
  Company Number: TN-JNJFOC-20110304263

PATIENT
  Age: 19 Year
  Sex: Female

DRUGS (11)
  1. TERBINAFINE HCL [Suspect]
     Route: 065
  2. TERBINAFINE HCL [Suspect]
     Route: 065
  3. ANTI TUBERCULOSIS MEDICATION [Suspect]
     Indication: TUBERCULOSIS
     Route: 065
  4. KETOCONAZOLE [Suspect]
     Indication: TRICHOPHYTOSIS
     Dosage: 200 MG/DAY FOR 21 DAYS
     Route: 065
  5. TERBINAFINE HCL [Suspect]
     Indication: FUNGAL INFECTION
     Route: 065
  6. KETOCONAZOLE [Suspect]
     Route: 061
  7. TERBINAFINE HCL [Suspect]
     Indication: TRICHOPHYTOSIS
     Route: 065
  8. GRISEOFULVIN [Suspect]
     Indication: TRICHOPHYTOSIS
     Dosage: FOR THREE MONTHS
     Route: 065
  9. GRISEOFULVIN [Suspect]
     Route: 065
  10. KETOCONAZOLE [Suspect]
     Indication: FUNGAL INFECTION
     Dosage: 200 MG/DAY FOR 21 DAYS
     Route: 065
  11. ANTI TUBERCULOSIS MEDICATION [Suspect]
     Route: 065

REACTIONS (2)
  - DRUG INEFFECTIVE [None]
  - SEPTIC SHOCK [None]
